FAERS Safety Report 9104240 (Version 4)
Quarter: 2013Q3

REPORT INFORMATION
  Report Type: Report from Study
  Country: JP (occurrence: JP)
  Receive Date: 20130219
  Receipt Date: 20130808
  Transmission Date: 20140515
  Serious: Yes (Death, Life-Threatening)
  Sender: FDA-Public Use
  Company Number: PHHY2013JP014874

PATIENT
  Age: 69 Year
  Sex: Male
  Weight: 66 kg

DRUGS (18)
  1. AMN107 [Suspect]
     Indication: CHRONIC MYELOID LEUKAEMIA
     Dosage: 200 MG, DAILY
     Route: 048
     Dates: start: 20100118, end: 20120309
  2. AMN107 [Suspect]
     Dosage: 200 MG, DAILY
     Route: 048
     Dates: start: 20120615, end: 20130108
  3. GASLON N [Concomitant]
     Indication: CHRONIC MYELOID LEUKAEMIA
     Dosage: 4 MG
     Route: 048
     Dates: start: 20100118, end: 20130108
  4. LUPRAC [Concomitant]
     Indication: PROPHYLAXIS
     Dosage: 8 MG
     Route: 048
     Dates: start: 20100115, end: 20100531
  5. ZYLORIC [Concomitant]
     Indication: CHRONIC MYELOID LEUKAEMIA
     Dosage: 300 MG
     Route: 048
     Dates: start: 20100208
  6. ZYLORIC [Concomitant]
     Dosage: 200 MG
     Route: 048
     Dates: end: 20130108
  7. URALYT [Concomitant]
     Indication: CHRONIC MYELOID LEUKAEMIA
     Dosage: 3 DF
     Route: 048
     Dates: start: 20100208
  8. URALYT [Concomitant]
     Dosage: 2 DF, UNK
     Route: 048
  9. ALLELOCK [Concomitant]
     Indication: RASH
     Dosage: 10 MG
     Route: 048
     Dates: start: 20100217
  10. ANTEBATE [Concomitant]
     Indication: RASH
     Dates: start: 20100329, end: 20100531
  11. EURAX [Concomitant]
     Indication: RASH
     Dates: start: 20100329, end: 20100531
  12. CYANAMIDE [Concomitant]
     Dosage: 5 MG
     Route: 048
     Dates: start: 20130108
  13. REFLAX [Concomitant]
     Dosage: 15 MG
     Route: 048
     Dates: start: 20130108
  14. DEPAKENE [Concomitant]
     Indication: PROPHYLAXIS
     Dosage: 400 MG
     Route: 048
     Dates: start: 20130108
  15. BAYASPIRIN [Concomitant]
     Indication: PROPHYLAXIS
     Dosage: 100 MG
     Dates: start: 20111122
  16. MAINTATE [Concomitant]
     Indication: HYPERTENSION
     Dosage: 2.5 MG
     Route: 048
     Dates: start: 20120502, end: 20130108
  17. WARFARIN [Concomitant]
     Indication: PROPHYLAXIS
     Dosage: 1.5 MG
     Route: 048
     Dates: start: 20120516
  18. WARFARIN [Concomitant]
     Dosage: 2 MG
     Route: 048
     Dates: end: 20130108

REACTIONS (4)
  - Cerebral infarction [Fatal]
  - Cerebral haemorrhage [Fatal]
  - Atrial fibrillation [Recovered/Resolved]
  - Tachyarrhythmia [Unknown]
